FAERS Safety Report 7133280-2 (Version None)
Quarter: 2010Q4

REPORT INFORMATION
  Report Type: 
  Country: None (occurrence: None)
  Receive Date: 20101117
  Receipt Date: 20101108
  Transmission Date: 20110411
  Serious: Yes (Other)
  Sender: FDA-Public Use
  Company Number: TPA2010A05704

PATIENT
  Age: 79 Year
  Sex: Female
  Weight: 76.19 kg

DRUGS (3)
  1. PREVACID [Suspect]
     Indication: GASTROOESOPHAGEAL REFLUX DISEASE
     Dosage: 30 MG, 30 MG IN THE EVENING, ORAL
     Route: 048
  2. PREVACID [Suspect]
     Indication: GASTROOESOPHAGEAL REFLUX DISEASE
     Dosage: 30 MG, 30 MG IN THE MORNING, ORAL
     Route: 048
     Dates: start: 20090101
  3. LYRICA [Concomitant]

REACTIONS (2)
  - CARDIAC DISORDER [None]
  - HYPERTENSION [None]
